FAERS Safety Report 6477836-9 (Version None)
Quarter: 2009Q4

REPORT INFORMATION
  Report Type: 
  Country: None (occurrence: None)
  Receive Date: 20091207
  Receipt Date: 20091124
  Transmission Date: 20100525
  Serious: Yes (Other)
  Sender: FDA-Public Use
  Company Number: US-BRACCO-003780

PATIENT
  Age: 67 Year
  Sex: Male

DRUGS (2)
  1. GADOLINIUM [Suspect]
     Indication: ANGIOPLASTY
     Route: 013
     Dates: start: 20030101, end: 20030101
  2. GADOLINIUM [Suspect]
     Indication: ANGIOGRAM
     Route: 013
     Dates: start: 20030101, end: 20030101

REACTIONS (1)
  - NEPHROGENIC SYSTEMIC FIBROSIS [None]
